FAERS Safety Report 8062277-3 (Version None)
Quarter: 2012Q1

REPORT INFORMATION
  Report Type: 
  Country: None (occurrence: None)
  Receive Date: 20120118
  Receipt Date: 20120107
  Transmission Date: 20120608
  Serious: Yes (Other)
  Sender: FDA-Public Use
  Company Number: 2012AP000054

PATIENT
  Age: 80 Year
  Sex: Male

DRUGS (1)
  1. ALLOPURINOL [Suspect]
     Indication: GOUT
     Dosage: 300 MG;QD

REACTIONS (4)
  - HEPATITIS E [None]
  - ASCITES [None]
  - HEPATIC ENCEPHALOPATHY [None]
  - LIVER INJURY [None]
